FAERS Safety Report 25712189 (Version 1)
Quarter: 2025Q3

REPORT INFORMATION
  Report Type: Spontaneous
  Country: US (occurrence: US)
  Receive Date: 20250821
  Receipt Date: 20250821
  Transmission Date: 20251021
  Serious: No
  Sender: AXSOME THERAPEUTICS
  Company Number: US-AXS-AXS202508-001410

PATIENT
  Age: 5 Decade
  Sex: Male

DRUGS (1)
  1. AUVELITY [Suspect]
     Active Substance: BUPROPION HYDROCHLORIDE\DEXTROMETHORPHAN HYDROBROMIDE
     Indication: Product used for unknown indication
     Route: 048

REACTIONS (5)
  - Road traffic accident [Unknown]
  - Memory impairment [Unknown]
  - Discomfort [Unknown]
  - Insomnia [Unknown]
  - Inappropriate schedule of product administration [Unknown]
